FAERS Safety Report 4431640-1 (Version None)
Quarter: 2004Q3

REPORT INFORMATION
  Report Type: 
  Country: None (occurrence: None)
  Receive Date: 20040721
  Receipt Date: 20040402
  Transmission Date: 20050211
  Serious: Yes (Disabling)
  Sender: FDA-Public Use
  Company Number: WAES 0404USA00232

PATIENT
  Age: 72 Year
  Sex: Male
  Weight: 87.0906 kg

DRUGS (11)
  1. VIOXX [Suspect]
     Indication: ARTHRALGIA
     Dosage: 25 MG/DAILY/PO
     Route: 048
     Dates: start: 20040331, end: 20040402
  2. MEVACOR [Concomitant]
  3. PRINIVIL [Concomitant]
  4. SYNTHROID [Concomitant]
  5. ASPIRIN [Concomitant]
  6. ATENOLOL [Concomitant]
  7. FOLIC ACID [Concomitant]
  8. IRON [Concomitant]
  9. NIACIN [Concomitant]
  10. VITAMIN E [Concomitant]
  11. ZINC SULFATE [Concomitant]

REACTIONS (1)
  - DIZZINESS [None]
